FAERS Safety Report 13188289 (Version 1)
Quarter: 2017Q1

REPORT INFORMATION
  Report Type: Spontaneous
  Country: DE (occurrence: DE)
  Receive Date: 20170206
  Receipt Date: 20170206
  Transmission Date: 20170428
  Serious: Yes (Other)
  Sender: FDA-Public Use
  Company Number: DE-DRREDDYS-USA/GER/17/0086922

PATIENT

DRUGS (3)
  1. QUETIAPINE. [Suspect]
     Active Substance: QUETIAPINE
     Indication: BIPOLAR DISORDER
     Route: 065
  2. VALPROIC ACID. [Interacting]
     Active Substance: VALPROIC ACID
     Indication: BIPOLAR DISORDER
     Route: 065
  3. ARIPIPRAZOLE. [Interacting]
     Active Substance: ARIPIPRAZOLE
     Indication: BIPOLAR DISORDER
     Route: 065

REACTIONS (3)
  - Vascular parkinsonism [Unknown]
  - Sedation [Unknown]
  - Drug interaction [Unknown]
